FAERS Safety Report 7183977-3 (Version None)
Quarter: 2010Q4

REPORT INFORMATION
  Report Type: 
  Country: None (occurrence: None)
  Receive Date: 20101222
  Receipt Date: 20101217
  Transmission Date: 20110411
  Serious: Yes (Death)
  Sender: FDA-Public Use
  Company Number: FR-ROCHE-749219

PATIENT
  Sex: Female

DRUGS (3)
  1. BEVACIZUMAB [Suspect]
     Route: 065
  2. PEMETREXED [Suspect]
     Route: 065
  3. CISPLATIN [Suspect]
     Route: 065

REACTIONS (2)
  - BONE LESION [None]
  - GENERAL PHYSICAL HEALTH DETERIORATION [None]
